FAERS Safety Report 5832735-8 (Version None)
Quarter: 2008Q3

REPORT INFORMATION
  Report Type: 
  Country: None (occurrence: None)
  Receive Date: 20080804
  Receipt Date: 20080725
  Transmission Date: 20090109
  Serious: Yes (Hospitalization, Other)
  Sender: FDA-Public Use
  Company Number: JP-PFIZER INC-2008035711

PATIENT
  Sex: Female

DRUGS (6)
  1. SOLANAX [Suspect]
     Route: 048
  2. NORVASC [Suspect]
     Indication: BLOOD PRESSURE
     Dosage: DAILY DOSE:2.5MG
     Route: 048
  3. LENDORMIN [Concomitant]
     Indication: ABDOMINAL PAIN
     Route: 048
  4. OLMESARTAN MEDOXOMIL [Concomitant]
     Dosage: DAILY DOSE:20MG-TEXT:DAILY
     Route: 048
  5. MYSLEE [Concomitant]
     Route: 048
  6. SELBEX [Concomitant]
     Route: 048

REACTIONS (10)
  - ABDOMINAL PAIN [None]
  - BLOOD PRESSURE INCREASED [None]
  - CONFUSIONAL STATE [None]
  - DIZZINESS [None]
  - DRY SKIN [None]
  - HEADACHE [None]
  - INJURY [None]
  - INSOMNIA [None]
  - OEDEMA PERIPHERAL [None]
  - RASH [None]
